FAERS Safety Report 24002509 (Version 2)
Quarter: 2024Q3

REPORT INFORMATION
  Report Type: Spontaneous
  Country: US (occurrence: US)
  Receive Date: 20240623
  Receipt Date: 20240704
  Transmission Date: 20241017
  Serious: No
  Sender: AMGEN
  Company Number: US-AMGEN-USASP2024119214

PATIENT
  Age: 58 Year
  Sex: Female

DRUGS (20)
  1. REPATHA [Suspect]
     Active Substance: EVOLOCUMAB
     Indication: Low density lipoprotein increased
     Dosage: 140 MILLIGRAM, Q2WK
     Route: 058
     Dates: start: 20240315
  2. REPATHA [Suspect]
     Active Substance: EVOLOCUMAB
     Indication: Hyperlipidaemia
  3. REPATHA [Suspect]
     Active Substance: EVOLOCUMAB
     Indication: Coronary artery disease
  4. REPATHA [Suspect]
     Active Substance: EVOLOCUMAB
     Indication: Acute myocardial infarction
  5. ANASTROZOLE [Concomitant]
     Active Substance: ANASTROZOLE
     Indication: Breast cancer
     Dosage: UNK
  6. ALLOPURINOL [Concomitant]
     Active Substance: ALLOPURINOL
     Dosage: UNK
  7. CRIXIVAN [Concomitant]
     Active Substance: INDINAVIR SULFATE
  8. ASPIRIN [Concomitant]
     Active Substance: ASPIRIN
     Dosage: UNK
  9. ATORVASTATIN [Concomitant]
     Active Substance: ATORVASTATIN
  10. EMPAGLIFLOZIN [Concomitant]
     Active Substance: EMPAGLIFLOZIN
  11. FUROSEMIDE [Concomitant]
     Active Substance: FUROSEMIDE
  12. MAGNESIUM OXIDE [Concomitant]
     Active Substance: MAGNESIUM OXIDE
     Dosage: UNK
     Dates: start: 20240523
  13. METOPROLOL [Concomitant]
     Active Substance: METOPROLOL
  14. PANTOPRAZOLE [Concomitant]
     Active Substance: PANTOPRAZOLE
  15. PREDNISONE [Concomitant]
     Active Substance: PREDNISONE
  16. ENTRESTO [Concomitant]
     Active Substance: SACUBITRIL\VALSARTAN
     Dosage: UNK UNK, BID
  17. SPIRONOLACTONE [Concomitant]
     Active Substance: SPIRONOLACTONE
  18. TACROLIMUS [Concomitant]
     Active Substance: TACROLIMUS
  19. VALGANCICLOVIR [Concomitant]
     Active Substance: VALGANCICLOVIR
  20. VENLAFAXINE [Concomitant]
     Active Substance: VENLAFAXINE HYDROCHLORIDE

REACTIONS (5)
  - Drug dose omission by device [Unknown]
  - Product communication issue [Unknown]
  - Accidental exposure to product [Unknown]
  - Device use error [Unknown]
  - Injection site pain [Unknown]

NARRATIVE: CASE EVENT DATE: 20240401
